FAERS Safety Report 25918629 (Version 1)
Quarter: 2025Q4

REPORT INFORMATION
  Report Type: Spontaneous
  Country: US (occurrence: None)
  Receive Date: 20251011
  Receipt Date: 20251011
  Transmission Date: 20260117
  Serious: Yes (Disabling)
  Sender: FDA-CTU
  Company Number: None

PATIENT
  Age: 68 Year
  Sex: Female
  Weight: 59.4 kg

DRUGS (7)
  1. EVOLOCUMAB [Suspect]
     Active Substance: EVOLOCUMAB
     Indication: Hyperlipidaemia
     Dosage: OTHER QUANTITY : 1 INJECTION(S);?OTHER FREQUENCY : EVERY 2 WEEKS;?
     Route: 058
     Dates: start: 20250913, end: 20250914
  2. Ezetemibe 10 mg daily [Concomitant]
  3. pitavastatin 2 mg daily [Concomitant]
  4. icosapent 3 grams daily [Concomitant]
  5. timolol eye drops bid [Concomitant]
  6. bimatoprost eye drops daily [Concomitant]
  7. Ibuprofen 400 mg bid [Concomitant]

REACTIONS (4)
  - Myalgia [None]
  - Musculoskeletal stiffness [None]
  - Joint swelling [None]
  - Gait disturbance [None]

NARRATIVE: CASE EVENT DATE: 20250916
